FAERS Safety Report 16092703 (Version 1)
Quarter: 2019Q1

REPORT INFORMATION
  Report Type: Spontaneous
  Country: GB (occurrence: GB)
  Receive Date: 20190319
  Receipt Date: 20190319
  Transmission Date: 20190418
  Serious: Yes (Death)
  Sender: FDA-Public Use
  Company Number: GB-BAXTER-2019BAX004914

PATIENT
  Age: 60 Year
  Sex: Male

DRUGS (5)
  1. WATER FOR INJECTION [Suspect]
     Active Substance: WATER
     Indication: MEDICATION DILUTION
     Route: 042
     Dates: start: 20190220
  2. REMICADE [Suspect]
     Active Substance: INFLIXIMAB
     Dosage: PATIENT HAS BEEN HAVING HIS REGULAR INFLIXIMAB INFUSIONS AT HOME, ADMINISTERED BY ALCURA NURSES
     Route: 042
     Dates: start: 20170517
  3. SODIUM CHLORIDE INTRAVENOUS INFUSION BP 0.9% W/V [Suspect]
     Active Substance: SODIUM CHLORIDE
     Indication: MEDICATION DILUTION
     Route: 042
     Dates: start: 20190220
  4. REMICADE [Suspect]
     Active Substance: INFLIXIMAB
     Indication: PRODUCT USED FOR UNKNOWN INDICATION
     Route: 042
     Dates: start: 2012
  5. REMICADE [Suspect]
     Active Substance: INFLIXIMAB
     Dosage: SCHEDULED 6 WEEKLY INFUSION OF IV INFLIXIMAB, COMPOUNDED WITH BAXTER WATER FOR INJECTION AND SODIUM
     Route: 042
     Dates: start: 20190220

REACTIONS (2)
  - Malaise [Unknown]
  - Death [Fatal]

NARRATIVE: CASE EVENT DATE: 20190301
